FAERS Safety Report 8617806-5 (Version None)
Quarter: 2012Q3

REPORT INFORMATION
  Report Type: 
  Country: None (occurrence: None)
  Receive Date: 20120824
  Receipt Date: 20120223
  Transmission Date: 20120928
  Serious: No
  Sender: FDA-Public Use
  Company Number: US-ASTRAZENECA-2012SE12955

PATIENT
  Sex: Female

DRUGS (1)
  1. SYMBICORT [Suspect]
     Route: 055

REACTIONS (5)
  - GASTRIC DISORDER [None]
  - HAEMOPTYSIS [None]
  - DYSPNOEA [None]
  - COUGH [None]
  - OROPHARYNGEAL PAIN [None]
